FAERS Safety Report 6034267-3 (Version None)
Quarter: 2009Q1

REPORT INFORMATION
  Report Type: 
  Country: None (occurrence: None)
  Receive Date: 20090108
  Receipt Date: 20081223
  Transmission Date: 20090719
  Serious: Yes (Death)
  Sender: FDA-Public Use
  Company Number: 000088

PATIENT
  Age: 48 Year
  Sex: Male

DRUGS (5)
  1. ALPRAZOLAM [Suspect]
     Dosage: (ORAL)
  2. HYDROCODONE BITARTRATE [Suspect]
  3. PROMETHAZINE [Suspect]
  4. COPEGUS [Suspect]
  5. TADALAFIL [Suspect]

REACTIONS (2)
  - COMPLETED SUICIDE [None]
  - INTENTIONAL DRUG MISUSE [None]
